FAERS Safety Report 13261986 (Version 1)
Quarter: 2017Q1

REPORT INFORMATION
  Report Type: Not Available
  Country: US (occurrence: US)
  Receive Date: 20170222
  Receipt Date: 20170222
  Transmission Date: 20170428
  Serious: No
  Sender: FDA-Public Use
  Company Number: US-HISAMITSU-2016-US-009402

PATIENT
  Age: 74 Year
  Sex: Male
  Weight: 74.84 kg

DRUGS (1)
  1. SALONPAS PAIN RELIEF [Suspect]
     Active Substance: MENTHOL\METHYL SALICYLATE
     Dosage: 1 PATCH TO BACK FOR 24 HOURS TWICE
     Route: 061
     Dates: start: 20161106, end: 20161111

REACTIONS (2)
  - Intentional product misuse [Unknown]
  - Drug ineffective [Unknown]
